FAERS Safety Report 22674564 (Version 3)
Quarter: 2024Q1

REPORT INFORMATION
  Report Type: Spontaneous
  Country: US (occurrence: US)
  Receive Date: 20230705
  Receipt Date: 20240320
  Transmission Date: 20240409
  Serious: Yes (Other)
  Sender: FDA-Public Use
  Company Number: US-PFIZER INC-US-GBT-022156

PATIENT
  Age: 12 Year
  Sex: Male
  Weight: 38.549 kg

DRUGS (9)
  1. OXBRYTA [Suspect]
     Active Substance: VOXELOTOR
     Indication: Sickle cell disease
     Dosage: 90 TABLETS FOR 30 DAYS
  2. OXBRYTA [Suspect]
     Active Substance: VOXELOTOR
     Indication: Pain
     Dosage: 1500 MG, DAILY (DOSAGE TEXT: 500 MG., 3 TABLETS, ONCE DAILY, ORALLY)
     Route: 048
     Dates: start: 20230321
  3. OXBRYTA [Suspect]
     Active Substance: VOXELOTOR
     Dosage: (2 PILLS SHE BELIEVES, EVERY DAY)
     Dates: start: 202303, end: 202305
  4. HYDROXYUREA [Concomitant]
     Active Substance: HYDROXYUREA
     Indication: Sickle cell anaemia with crisis
     Dosage: (1000MG MONDAY-FRIDAY)
  5. HYDROXYUREA [Concomitant]
     Active Substance: HYDROXYUREA
     Dosage: (ON SATURDAY AND SUNDAY TAKES 500MG)
  6. FOLIC ACID [Concomitant]
     Active Substance: FOLIC ACID
     Indication: Sickle cell disease
     Dosage: 1 MG, DAILY
     Dates: start: 20100921
  7. OXYCODONE [Concomitant]
     Active Substance: OXYCODONE\OXYCODONE HYDROCHLORIDE
     Indication: Sickle cell anaemia with crisis
     Dosage: (10MG PRN)
  8. MOTRIN [Concomitant]
     Active Substance: IBUPROFEN
     Dosage: (200MG AS NEEDED)
  9. TYLENOL [Concomitant]
     Active Substance: ACETAMINOPHEN
     Dosage: (DOSE UNKNOWN, TAKES AS NEEDED)

REACTIONS (4)
  - Sickle cell anaemia with crisis [Unknown]
  - Therapeutic product effect incomplete [Unknown]
  - Headache [Unknown]
  - Pain [Unknown]
